FAERS Safety Report 8912986 (Version 1)
Quarter: 2012Q4

REPORT INFORMATION
  Report Type: Spontaneous
  Country: US (occurrence: None)
  Receive Date: 20121114
  Receipt Date: 20121114
  Transmission Date: 20130627
  Serious: Yes (Hospitalization)
  Sender: FDA-Public Use
  Company Number: None

PATIENT
  Age: 75 Year
  Sex: Male
  Weight: 136 kg

DRUGS (18)
  1. ZYTIGA [Suspect]
     Route: 048
     Dates: start: 20120903, end: 20121112
  2. PREDNISONE [Concomitant]
  3. VITAMIN D [Concomitant]
  4. BETACAROTENE [Concomitant]
  5. OTC MYELIN SHEATH SUPPORT [Concomitant]
  6. CALCIUM 600MG [Concomitant]
  7. CO ENZYME Q 10 [Concomitant]
  8. IODORAL [Concomitant]
  9. SELENIUM 200 MCG [Concomitant]
  10. OT ATP COFACTORS [Concomitant]
  11. ACETYL CYSTEINE [Concomitant]
  12. GERMANIUM 100MG [Concomitant]
  13. RESERVATROL [Concomitant]
  14. VIT. B COMPLEX [Concomitant]
  15. ASTAXANTHIN [Concomitant]
  16. K COMPLEX [Concomitant]
  17. COD LIVER OIL [Concomitant]
  18. OLEANDER [Concomitant]

REACTIONS (1)
  - Myocardial infarction [None]
